FAERS Safety Report 7911617-1 (Version None)
Quarter: 2011Q4

REPORT INFORMATION
  Report Type: 
  Country: None (occurrence: None)
  Receive Date: 20111114
  Receipt Date: 20111114
  Transmission Date: 20120403
  Serious: No
  Sender: FDA-Public Use
  Company Number: None

PATIENT
  Age: 43 Year
  Sex: Male

DRUGS (1)
  1. NUCYNTA [Suspect]
     Indication: INTERVERTEBRAL DISC DEGENERATION
     Dosage: 100 MG
     Route: 048
     Dates: start: 20110706, end: 20110720

REACTIONS (7)
  - PHOTOPSIA [None]
  - COLD SWEAT [None]
  - FEAR [None]
  - HALLUCINATION, AUDITORY [None]
  - HYPERVENTILATION [None]
  - PANIC REACTION [None]
  - FEELING ABNORMAL [None]
